FAERS Safety Report 7579050-2 (Version None)
Quarter: 2011Q2

REPORT INFORMATION
  Report Type: 
  Country: None (occurrence: None)
  Receive Date: 20110628
  Receipt Date: 20110617
  Transmission Date: 20111010
  Serious: Yes (Hospitalization)
  Sender: FDA-Public Use
  Company Number: PHHY2011US54304

PATIENT
  Age: 17 Year
  Sex: Female

DRUGS (10)
  1. ALLOPURINOL [Suspect]
     Dosage: UNK
  2. CYCLOPHOSPHAMIDE [Suspect]
     Indication: CHORIOCARCINOMA
     Dosage: UNK
  3. VINCRISTINE [Suspect]
     Indication: CHORIOCARCINOMA
     Dosage: UNK
  4. METHOTREXATE [Suspect]
     Indication: CHORIOCARCINOMA
     Dosage: UNK
  5. DACTINOMYCIN [Suspect]
     Indication: CHORIOCARCINOMA
     Dosage: UNK
  6. DEXAMETHASONE [Suspect]
     Indication: THYROTOXIC CRISIS
     Dosage: UNK
  7. CHOLESTYRAMINE [Suspect]
     Indication: THYROTOXIC CRISIS
     Dosage: UNK
  8. PROPRANOLOL [Suspect]
     Indication: THYROTOXIC CRISIS
     Dosage: UNK
  9. ETOPOSIDE [Suspect]
     Indication: CHORIOCARCINOMA
     Dosage: UNK
  10. PROPYLTHIOURACIL [Suspect]
     Indication: THYROTOXIC CRISIS
     Dosage: UNK

REACTIONS (13)
  - VOMITING [None]
  - DEHYDRATION [None]
  - GASTROINTESTINAL HAEMORRHAGE [None]
  - BLOOD PHOSPHORUS INCREASED [None]
  - OESOPHAGITIS [None]
  - FUNGAEMIA [None]
  - NAUSEA [None]
  - RENAL FAILURE ACUTE [None]
  - TUMOUR LYSIS SYNDROME [None]
  - DEEP VEIN THROMBOSIS [None]
  - CARDIAC FAILURE CONGESTIVE [None]
  - PULMONARY OEDEMA [None]
  - EJECTION FRACTION DECREASED [None]
